FAERS Safety Report 5946779-9 (Version None)
Quarter: 2008Q4

REPORT INFORMATION
  Report Type: 
  Country: None (occurrence: None)
  Receive Date: 20081110
  Receipt Date: 20081031
  Transmission Date: 20090506
  Serious: Yes (Other)
  Sender: FDA-Public Use
  Company Number: JP-MERCK-0806USA01366

PATIENT
  Age: 76 Year
  Sex: Female

DRUGS (8)
  1. FOSAMAX [Suspect]
     Indication: OSTEOPOROSIS
     Route: 048
     Dates: start: 20061124, end: 20080403
  2. PANALDINE [Concomitant]
     Indication: HYPERTENSION
     Route: 048
  3. ASPIRIN [Concomitant]
     Indication: HYPERTENSION
     Route: 048
  4. NORVASC [Concomitant]
     Indication: HYPERTENSION
     Route: 048
  5. OMEPRAZOLE [Concomitant]
     Route: 048
  6. LASIX [Concomitant]
     Indication: HYPERTENSION
     Route: 048
  7. JUVELA N [Concomitant]
     Indication: DIABETES MELLITUS
     Route: 048
  8. ADOFEED [Concomitant]
     Route: 061

REACTIONS (1)
  - OSTEOMYELITIS [None]
